FAERS Safety Report 23036823 (Version 1)
Quarter: 2023Q4

REPORT INFORMATION
  Report Type: Spontaneous
  Country: FR (occurrence: FR)
  Receive Date: 20231006
  Receipt Date: 20231006
  Transmission Date: 20240110
  Serious: Yes (Hospitalization)
  Sender: FDA-Public Use
  Company Number: None

PATIENT
  Age: 56 Year
  Sex: Male

DRUGS (7)
  1. CAPECITABINE [Suspect]
     Active Substance: CAPECITABINE
     Indication: Cholangiosarcoma
     Dosage: FIRST COURSE
     Route: 048
     Dates: start: 202306
  2. CAPECITABINE [Suspect]
     Active Substance: CAPECITABINE
     Indication: Cholangiosarcoma
     Dosage: 2000 MG MORNING AND EVENING, 2ND COURSE, 4 TABLETS MORNING AND EVENING?DAILY DOSE: 4000 MILLIGRAM
     Route: 048
     Dates: start: 20230916, end: 20230918
  3. ESOMEPRAZOLE [Concomitant]
     Active Substance: ESOMEPRAZOLE
  4. PANCRELIPASE [Concomitant]
     Active Substance: PANCRELIPASE
  5. FUROSEMIDE [Concomitant]
     Active Substance: FUROSEMIDE
  6. CETIRIZINE [Concomitant]
     Active Substance: CETIRIZINE HYDROCHLORIDE
  7. INNOHEP [Concomitant]
     Active Substance: TINZAPARIN SODIUM

REACTIONS (3)
  - Hyperammonaemic encephalopathy [Recovering/Resolving]
  - Hypoglycaemia [Unknown]
  - Product use in unapproved indication [Recovered/Resolved]

NARRATIVE: CASE EVENT DATE: 20230601
